FAERS Safety Report 5581612-9 (Version None)
Quarter: 2008Q1

REPORT INFORMATION
  Report Type: 
  Country: None (occurrence: None)
  Receive Date: 20080104
  Receipt Date: 20080104
  Transmission Date: 20080703
  Serious: Yes (Other)
  Sender: FDA-Public Use
  Company Number: A0701324A

PATIENT
  Sex: Female

DRUGS (2)
  1. NICODERM [Suspect]
     Indication: SMOKING CESSATION THERAPY
     Dosage: 21MG PER DAY
     Route: 062
  2. NICODERM [Suspect]
     Indication: SMOKING CESSATION THERAPY
     Dosage: 7MG UNKNOWN
     Route: 062
     Dates: start: 20071231

REACTIONS (4)
  - DRUG ADMINISTRATION ERROR [None]
  - MYOCARDIAL INFARCTION [None]
  - NERVOUSNESS [None]
  - PALPITATIONS [None]
